FAERS Safety Report 19481186 (Version 1)
Quarter: 2021Q3

REPORT INFORMATION
  Report Type: Spontaneous
  Country: FR (occurrence: FR)
  Receive Date: 20210701
  Receipt Date: 20210701
  Transmission Date: 20211014
  Serious: Yes (Other)
  Sender: FDA-Public Use
  Company Number: FR-SUN PHARMACEUTICAL INDUSTRIES LTD-2021RR-302705

PATIENT
  Sex: Male

DRUGS (2)
  1. IXPRIM [Suspect]
     Active Substance: ACETAMINOPHEN\TRAMADOL HYDROCHLORIDE
     Indication: PRODUCT USED FOR UNKNOWN INDICATION
     Dosage: 4 CP DE 37,5MG/325MG PER DAY
     Route: 048
     Dates: start: 2021
  2. MORPHINE [Suspect]
     Active Substance: MORPHINE
     Indication: PRODUCT USED FOR UNKNOWN INDICATION
     Dosage: 60 MILLIGRAM, UNK, 20 MG X 3
     Route: 042
     Dates: start: 2021

REACTIONS (3)
  - Non-24-hour sleep-wake disorder [Unknown]
  - Drug dependence [Unknown]
  - Drug abuser [Unknown]

NARRATIVE: CASE EVENT DATE: 2021
